FAERS Safety Report 5146279-2 (Version None)
Quarter: 2006Q4

REPORT INFORMATION
  Report Type: 
  Country: None (occurrence: None)
  Receive Date: 20061102
  Receipt Date: 20061020
  Transmission Date: 20070319
  Serious: Yes (Hospitalization)
  Sender: FDA-Public Use
  Company Number: HQWYE420607SEP06

PATIENT
  Age: 56 Year
  Sex: Female

DRUGS (3)
  1. PANTOPRAZOLE SODIUM [Suspect]
     Indication: DYSPEPSIA
     Dosage: 40 MG 1X PER 1 DAY ORAL
     Route: 048
     Dates: start: 20050101, end: 20051201
  2. PANTOPRAZOLE SODIUM [Suspect]
     Indication: GASTROOESOPHAGEAL REFLUX DISEASE
     Dosage: 40 MG 1X PER 1 DAY ORAL
     Route: 048
     Dates: start: 20050101, end: 20051201
  3. EFFEXOR [Concomitant]

REACTIONS (7)
  - DIALYSIS [None]
  - MALAISE [None]
  - NAUSEA [None]
  - RENAL FAILURE ACUTE [None]
  - RENAL TUBULAR NECROSIS [None]
  - TREMOR [None]
  - WEIGHT DECREASED [None]
